FAERS Safety Report 15243199 (Version 2)
Quarter: 2018Q3

REPORT INFORMATION
  Report Type: Spontaneous
  Country: US (occurrence: US)
  Receive Date: 20180806
  Receipt Date: 20180906
  Transmission Date: 20181010
  Serious: Yes (Hospitalization, Other)
  Sender: FDA-Public Use
  Company Number: US-BAYER-2018-143977

PATIENT
  Age: 20 Year
  Sex: Female
  Weight: 63.49 kg

DRUGS (6)
  1. ALBUTEROL. [Concomitant]
     Active Substance: ALBUTEROL
     Indication: SEASONAL ALLERGY
     Dosage: UNK UNK, PRN
     Route: 045
  2. ZOLOFT [Concomitant]
     Active Substance: SERTRALINE HYDROCHLORIDE
     Indication: ANXIETY
  3. MIRENA [Suspect]
     Active Substance: LEVONORGESTREL
     Dosage: 20 MCG/24HR, CONT
     Route: 015
     Dates: start: 20180313, end: 20180429
  4. IRON [Concomitant]
     Active Substance: IRON
     Indication: ANAEMIA
  5. CLARITIN?D NOS [Concomitant]
     Active Substance: LORATADINE\PSEUDOEPHEDRINE SULFATE
     Indication: SEASONAL ALLERGY
     Dosage: UNK UNK, PRN
     Route: 048
  6. CLARISPRAY NASAL ALLERGY [Concomitant]
     Active Substance: FLUTICASONE PROPIONATE
     Indication: SEASONAL ALLERGY
     Dosage: UNK UNK, PRN
     Route: 045

REACTIONS (7)
  - Anxiety [Recovered/Resolved with Sequelae]
  - Visual impairment [Recovered/Resolved with Sequelae]
  - Hypersomnia [Recovered/Resolved with Sequelae]
  - Idiopathic intracranial hypertension [Recovered/Resolved with Sequelae]
  - Headache [Recovered/Resolved with Sequelae]
  - Dizziness [Recovered/Resolved with Sequelae]
  - Weight increased [None]

NARRATIVE: CASE EVENT DATE: 2018
